FAERS Safety Report 6377145-2 (Version None)
Quarter: 2009Q3

REPORT INFORMATION
  Report Type: 
  Country: None (occurrence: None)
  Receive Date: 20090925
  Receipt Date: 20090914
  Transmission Date: 20100115
  Serious: Yes (Other)
  Sender: FDA-Public Use
  Company Number: FR-PFIZER INC-2009268177

PATIENT
  Age: 59 Year

DRUGS (3)
  1. VFEND [Suspect]
     Indication: SYSTEMIC CANDIDA
     Dosage: 200 MG, 2X/DAY
     Route: 042
  2. VFEND [Suspect]
     Dosage: 200 MG, 2X/DAY
     Route: 042
     Dates: start: 20090906, end: 20090901
  3. DRUG, UNSPECIFIED [Concomitant]

REACTIONS (1)
  - RASH GENERALISED [None]
